FAERS Safety Report 4790159-9 (Version None)
Quarter: 2005Q4

REPORT INFORMATION
  Report Type: 
  Country: None (occurrence: None)
  Receive Date: 20051005
  Receipt Date: 20051005
  Transmission Date: 20060501
  Serious: Yes (Hospitalization)
  Sender: FDA-Public Use
  Company Number: None

PATIENT
  Age: 56 Year
  Sex: Female

DRUGS (7)
  1. DILANTIN [Suspect]
     Indication: CONVULSION
     Dosage: 100 MG PO BID
     Route: 048
     Dates: start: 20040401
  2. LISINOPRIL [Concomitant]
  3. M.V.I. [Concomitant]
  4. PHENOBARBITAL TAB [Concomitant]
  5. PANTOPRAZOLE [Concomitant]
  6. RANITIDINE [Concomitant]
  7. RISPERDAL [Concomitant]

REACTIONS (2)
  - ANTICONVULSANT TOXICITY [None]
  - CHEST PAIN [None]
